FAERS Safety Report 7733399-9 (Version None)
Quarter: 2011Q3

REPORT INFORMATION
  Report Type: 
  Country: None (occurrence: None)
  Receive Date: 20110901
  Receipt Date: 20110722
  Transmission Date: 20111222
  Serious: Yes (Hospitalization)
  Sender: FDA-Public Use
  Company Number: KV201100145

PATIENT
  Age: 22 Year
  Sex: Female

DRUGS (4)
  1. MAKENA [Suspect]
     Indication: PREMATURE DELIVERY
     Dosage: 250 MG, ONCE WEEKLY, INTRAMUSCULAR
     Route: 030
     Dates: start: 20110512, end: 20110603
  2. ABILIFY (ARPIPRAZOLE) [Concomitant]
  3. AMOXICILLIN [Concomitant]
  4. MACROBID /00024401/ (NITROFURANTOIN) [Concomitant]

REACTIONS (2)
  - PREMATURE LABOUR [None]
  - URINARY TRACT INFECTION [None]
